FAERS Safety Report 25777039 (Version 1)
Quarter: 2025Q3

REPORT INFORMATION
  Report Type: Spontaneous
  Country: CN (occurrence: CN)
  Receive Date: 20250909
  Receipt Date: 20250909
  Transmission Date: 20251020
  Serious: Yes (Other)
  Sender: GLAND PHARMA LTD
  Company Number: CN-GLANDPHARMA-CN-2025GLNLIT01801

PATIENT
  Age: 45 Year
  Sex: Female

DRUGS (10)
  1. CISPLATIN [Suspect]
     Active Substance: CISPLATIN
     Indication: Large cell lung cancer
     Route: 065
     Dates: start: 2021
  2. CISPLATIN [Suspect]
     Active Substance: CISPLATIN
     Route: 065
     Dates: start: 2022
  3. CAMRELIZUMAB [Suspect]
     Active Substance: CAMRELIZUMAB
     Indication: Neuroendocrine carcinoma
     Route: 065
     Dates: start: 2021
  4. CAMRELIZUMAB [Suspect]
     Active Substance: CAMRELIZUMAB
     Route: 065
     Dates: start: 20210730, end: 20220624
  5. CAMRELIZUMAB [Suspect]
     Active Substance: CAMRELIZUMAB
     Route: 065
  6. ENDOSTATIN [Suspect]
     Active Substance: ENDOSTATIN
     Indication: Large cell lung cancer
     Route: 042
  7. ENDOSTATIN [Suspect]
     Active Substance: ENDOSTATIN
     Route: 065
     Dates: start: 20210730, end: 20220624
  8. ENDOSTATIN [Suspect]
     Active Substance: ENDOSTATIN
     Route: 065
  9. ETOPOSIDE [Suspect]
     Active Substance: ETOPOSIDE
     Indication: Large cell lung cancer
     Route: 065
  10. ETOPOSIDE [Suspect]
     Active Substance: ETOPOSIDE
     Route: 065

REACTIONS (3)
  - Gastrointestinal toxicity [Unknown]
  - Myelosuppression [Unknown]
  - Drug ineffective for unapproved indication [Unknown]

NARRATIVE: CASE EVENT DATE: 20210101
